FAERS Safety Report 8118465-0 (Version None)
Quarter: 2012Q1

REPORT INFORMATION
  Report Type: 
  Country: None (occurrence: None)
  Receive Date: 20120207
  Receipt Date: 20120127
  Transmission Date: 20120608
  Serious: Yes (Hospitalization, Other)
  Sender: FDA-Public Use
  Company Number: US-AMGEN-USASP2012005893

PATIENT
  Age: 59 Year
  Sex: Female

DRUGS (2)
  1. PLAQUENIL [Concomitant]
     Dosage: 2 MG, UNK
     Dates: start: 20000101
  2. ENBREL [Suspect]
     Indication: RHEUMATOID ARTHRITIS
     Dosage: 50 MG, QWK
     Dates: start: 20000417

REACTIONS (11)
  - PNEUMONIA [None]
  - CHEST PAIN [None]
  - STENT PLACEMENT [None]
  - INJECTION SITE PRURITUS [None]
  - SUFFOCATION FEELING [None]
  - INTRA-ABDOMINAL HAEMATOMA [None]
  - COUGH [None]
  - RHEUMATOID ARTHRITIS [None]
  - NECK PAIN [None]
  - PAIN IN EXTREMITY [None]
  - MYOCARDIAL INFARCTION [None]
